FAERS Safety Report 6161546-1 (Version None)
Quarter: 2009Q2

REPORT INFORMATION
  Report Type: 
  Country: None (occurrence: None)
  Receive Date: 20090421
  Receipt Date: 20090410
  Transmission Date: 20091009
  Serious: Yes (Hospitalization)
  Sender: FDA-Public Use
  Company Number: JP-NOVOPROD-284230

PATIENT
  Age: 25 Year
  Sex: Male
  Weight: 58 kg

DRUGS (8)
  1. NOVOSEVEN [Suspect]
     Indication: HAEMOPHILIA B WITH ANTI FACTOR IX
     Dosage: 4.8-6 MG, 2-4 HOUR
     Route: 042
     Dates: start: 20080925, end: 20081018
  2. HYDANTOL [Suspect]
     Dosage: 600 ML, UNK
     Route: 042
     Dates: start: 20080925, end: 20081009
  3. GLYCEOL                            /00744501/ [Concomitant]
     Dosage: 100 MG, UNK
     Route: 042
     Dates: start: 20080925, end: 20081001
  4. ADONA                              /00056903/ [Concomitant]
     Dosage: 1000 MG, UNK
     Route: 042
     Dates: start: 20080925, end: 20081002
  5. TRANSAMIN [Concomitant]
     Dosage: 250 MG, UNK
     Route: 042
     Dates: start: 20080929, end: 20081009
  6. ALEVIATIN                          /00017401/ [Concomitant]
     Dosage: 225-300 MG, UNK
     Route: 048
     Dates: start: 20081009, end: 20081024
  7. VANCOMYCIN HCL [Concomitant]
     Dosage: 2 G, UNK
     Route: 042
     Dates: start: 20081011, end: 20081019
  8. OMEPRAL                            /00661201/ [Concomitant]
     Dosage: 40 MG, UNK
     Route: 042
     Dates: start: 20080925, end: 20081011

REACTIONS (4)
  - ALANINE AMINOTRANSFERASE INCREASED [None]
  - ASPARTATE AMINOTRANSFERASE INCREASED [None]
  - BLOOD ALKALINE PHOSPHATASE INCREASED [None]
  - GAMMA-GLUTAMYLTRANSFERASE INCREASED [None]
